FAERS Safety Report 18311650 (Version 1)
Quarter: 2020Q3

REPORT INFORMATION
  Report Type: Spontaneous
  Country: US (occurrence: US)
  Receive Date: 20200924
  Receipt Date: 20200924
  Transmission Date: 20201103
  Serious: No
  Sender: FDA-Public Use
  Company Number: None

PATIENT
  Age: 36 Year
  Sex: Female
  Weight: 112.5 kg

DRUGS (6)
  1. EMGALITY [Suspect]
     Active Substance: GALCANEZUMAB-GNLM
     Indication: MIGRAINE
     Dates: start: 20200914, end: 20200914
  2. NALTREXONE [Concomitant]
     Active Substance: NALTREXONE
  3. HYDROXYCHOLORQUINE [Concomitant]
  4. RINVOQ [Concomitant]
     Active Substance: UPADACITINIB
  5. VITAMIN D [Concomitant]
     Active Substance: VITAMIN D NOS
  6. MONTELUKAST [Concomitant]
     Active Substance: MONTELUKAST SODIUM

REACTIONS (5)
  - Pruritus [None]
  - Injection site pruritus [None]
  - Erythema [None]
  - Feeling hot [None]
  - Injection site erythema [None]

NARRATIVE: CASE EVENT DATE: 20200916
